FAERS Safety Report 7902934-X (Version None)
Quarter: 2011Q4

REPORT INFORMATION
  Report Type: 
  Country: None (occurrence: None)
  Receive Date: 20111103
  Receipt Date: 20111024
  Transmission Date: 20120403
  Serious: Yes (Hospitalization)
  Sender: FDA-Public Use
  Company Number: WAES 1104USA02747

PATIENT
  Age: 46 Year
  Sex: Female

DRUGS (9)
  1. ASPIRIN [Concomitant]
  2. BLINDED THERAPY [Suspect]
     Indication: TYPE 2 DIABETES MELLITUS
     Dates: start: 20100826
  3. NOVORAPID (NISULIN ASPART) [Suspect]
     Dosage: 27 IU
  4. METFORMIN HCL [Suspect]
     Dosage: 500 MG
     Dates: start: 20110110, end: 20110110
  5. HYDRODIURIL [Suspect]
  6. SPIRONOLACTONE [Suspect]
  7. LANTUS [Suspect]
     Dosage: 20 IU
  8. CELEBREX [Suspect]
  9. PRINIVIL [Suspect]
     Dosage: PO
     Route: 048
     Dates: end: 20110107

REACTIONS (4)
  - DEHYDRATION [None]
  - CAMPYLOBACTER INTESTINAL INFECTION [None]
  - GASTROENTERITIS VIRAL [None]
  - RENAL FAILURE ACUTE [None]
